FAERS Safety Report 6575788-4 (Version None)
Quarter: 2010Q1

REPORT INFORMATION
  Report Type: 
  Country: None (occurrence: None)
  Receive Date: 20100208
  Receipt Date: 20100208
  Transmission Date: 20100710
  Serious: No
  Sender: FDA-Public Use
  Company Number: None

PATIENT
  Sex: Male
  Weight: 128.368 kg

DRUGS (2)
  1. OMNISCAN [Suspect]
     Indication: BRAIN INJURY
     Dosage: 20 ML ONCE
     Dates: start: 20040805, end: 20040805
  2. OMNISCAN [Suspect]
     Indication: INVESTIGATION
     Dosage: 20 ML ONCE
     Dates: start: 20040805, end: 20040805

REACTIONS (1)
  - NO ADVERSE EVENT [None]
